FAERS Safety Report 9217617 (Version 2)
Quarter: 2013Q2

REPORT INFORMATION
  Report Type: Report from Study
  Country: BE (occurrence: BE)
  Receive Date: 20130408
  Receipt Date: 20130408
  Transmission Date: 20140414
  Serious: Yes (Hospitalization)
  Sender: FDA-Public Use
  Company Number: BE-TEVA-391656ISR

PATIENT
  Age: 66 Year
  Sex: Male
  Weight: 82 kg

DRUGS (1)
  1. RESLIZUMAB [Suspect]
     Indication: ASTHMA
     Route: 042
     Dates: start: 20120209, end: 20130213

REACTIONS (2)
  - Gouty arthritis [Recovered/Resolved]
  - Lung disorder [None]
